FAERS Safety Report 7743196-6 (Version None)
Quarter: 2011Q3

REPORT INFORMATION
  Report Type: 
  Country: None (occurrence: None)
  Receive Date: 20110912
  Receipt Date: 20110906
  Transmission Date: 20111222
  Serious: Yes (Other)
  Sender: FDA-Public Use
  Company Number: US-AMGEN-USASP2011045570

PATIENT
  Sex: Female

DRUGS (3)
  1. NEULASTA [Suspect]
     Indication: NEUTROPENIA
  2. NEUPOGEN [Suspect]
     Indication: NEUTROPENIA
  3. ANTINEOPLASTIC AGENTS [Concomitant]
     Indication: FALLOPIAN TUBE CANCER

REACTIONS (3)
  - FALLOPIAN TUBE CANCER [None]
  - BONE PAIN [None]
  - LYMPHADENOPATHY [None]
